FAERS Safety Report 6346816-6 (Version None)
Quarter: 2009Q3

REPORT INFORMATION
  Report Type: 
  Country: None (occurrence: None)
  Receive Date: 20090910
  Receipt Date: 20090902
  Transmission Date: 20100115
  Serious: Yes (Hospitalization)
  Sender: FDA-Public Use
  Company Number: US-BIOGENIDEC-2009BI028112

PATIENT
  Age: 37 Year
  Sex: Female

DRUGS (1)
  1. TYSABRI [Suspect]
     Indication: MULTIPLE SCLEROSIS
     Route: 042
     Dates: start: 20070515

REACTIONS (7)
  - FATIGUE [None]
  - HALLUCINATION [None]
  - MENTAL DISORDER [None]
  - OVERDOSE [None]
  - RASH [None]
  - ULCER [None]
  - URINARY TRACT INFECTION [None]
